FAERS Safety Report 8256775-7 (Version None)
Quarter: 2012Q2

REPORT INFORMATION
  Report Type: 
  Country: None (occurrence: None)
  Receive Date: 20120403
  Receipt Date: 20120327
  Transmission Date: 20120825
  Serious: Yes (Hospitalization)
  Sender: FDA-Public Use
  Company Number: US-JNJFOC-20101108146

PATIENT
  Sex: Female

DRUGS (5)
  1. PEPCID [Concomitant]
     Route: 065
  2. DOXIL [Suspect]
     Indication: OVARIAN CANCER METASTATIC
     Route: 042
     Dates: start: 20101103
  3. DOXIL [Suspect]
     Dosage: 5 CYCLES
     Route: 042
     Dates: start: 20100630, end: 20101006
  4. FRAGMIN [Concomitant]
     Route: 065
  5. FOSAMAX [Concomitant]
     Route: 065

REACTIONS (10)
  - URINARY TRACT INFECTION [None]
  - DECREASED APPETITE [None]
  - ASCITES [None]
  - ANAEMIA [None]
  - PULMONARY EMBOLISM [None]
  - DYSPNOEA [None]
  - TACHYCARDIA [None]
  - NAUSEA [None]
  - VOMITING [None]
  - DISEASE PROGRESSION [None]
